FAERS Safety Report 19281628 (Version 2)
Quarter: 2021Q2

REPORT INFORMATION
  Report Type: Spontaneous
  Country: ES (occurrence: ES)
  Receive Date: 20210520
  Receipt Date: 20210526
  Transmission Date: 20210717
  Serious: Yes (Hospitalization)
  Sender: FDA-Public Use
  Company Number: NVSC2021ES105453

PATIENT
  Age: 45 Year
  Sex: Male

DRUGS (1)
  1. TASIGNA [Suspect]
     Active Substance: NILOTINIB
     Indication: CHRONIC MYELOID LEUKAEMIA
     Dosage: 300 MG, BID
     Route: 065

REACTIONS (6)
  - Gingival bleeding [Recovered/Resolved]
  - Toxicity to various agents [Not Recovered/Not Resolved]
  - Thrombocytopenia [Not Recovered/Not Resolved]
  - Aplasia [Unknown]
  - Contusion [Not Recovered/Not Resolved]
  - Petechiae [Not Recovered/Not Resolved]

NARRATIVE: CASE EVENT DATE: 20210420
